FAERS Safety Report 16978565 (Version 1)
Quarter: 2019Q4

REPORT INFORMATION
  Report Type: Spontaneous
  Country: US (occurrence: US)
  Receive Date: 20191031
  Receipt Date: 20191031
  Transmission Date: 20200122
  Serious: Yes (Life-Threatening, Hospitalization)
  Sender: FDA-Public Use
  Company Number: US-MYLANLABS-2019M1103679

PATIENT
  Age: 87 Year
  Sex: Female

DRUGS (3)
  1. LEVOTHYROXINE. [Suspect]
     Active Substance: LEVOTHYROXINE
     Indication: HYPOTHYROIDISM
     Dosage: UNK
     Route: 065
  2. HYDROXYUREA. [Suspect]
     Active Substance: HYDROXYUREA
     Indication: THROMBOCYTOSIS
     Dosage: UNK
     Route: 065
  3. AMIODARONE [Suspect]
     Active Substance: AMIODARONE
     Indication: CARDIAC FAILURE
     Dosage: UNK
     Route: 065

REACTIONS (7)
  - Anaemia macrocytic [Recovering/Resolving]
  - Liver disorder [Recovered/Resolved]
  - Pulmonary toxicity [Not Recovered/Not Resolved]
  - Hepatic congestion [Recovered/Resolved]
  - Cardiac failure acute [Recovered/Resolved]
  - Thrombocytopenia [Recovering/Resolving]
  - Hepatotoxicity [Recovered/Resolved]
